FAERS Safety Report 4722218-0 (Version None)
Quarter: 2005Q3

REPORT INFORMATION
  Report Type: 
  Country: None (occurrence: None)
  Receive Date: 20050722
  Receipt Date: 20040908
  Transmission Date: 20060218
  Serious: Yes (Other)
  Sender: FDA-Public Use
  Company Number: US-GLAXOSMITHKLINE-A0524900A

PATIENT
  Age: 55 Year
  Sex: Female

DRUGS (2)
  1. AVANDIA [Suspect]
     Route: 048
     Dates: start: 20010901, end: 20030101
  2. INSULIN [Concomitant]

REACTIONS (2)
  - CARDIAC FAILURE CONGESTIVE [None]
  - DRUG INEFFECTIVE [None]
